FAERS Safety Report 21905970 (Version 4)
Quarter: 2023Q1

REPORT INFORMATION
  Report Type: Spontaneous
  Country: BR (occurrence: BR)
  Receive Date: 20230124
  Receipt Date: 20230221
  Transmission Date: 20230418
  Serious: Yes (Other)
  Sender: FDA-Public Use
  Company Number: BR-SA-SAC20230106000002

PATIENT
  Age: 14 Month
  Sex: Female
  Weight: 10 kg

DRUGS (2)
  1. SABRIL [Suspect]
     Active Substance: VIGABATRIN
     Indication: Epilepsy
     Dosage: 0.5 DF, Q12H
     Route: 048
     Dates: start: 202209, end: 202211
  2. SABRIL [Suspect]
     Active Substance: VIGABATRIN
     Dosage: 1 DF, Q8H
     Route: 048
     Dates: start: 202211, end: 20221223

REACTIONS (3)
  - Epilepsy [Recovered/Resolved]
  - Drug ineffective [Unknown]
  - Wrong technique in product usage process [Unknown]

NARRATIVE: CASE EVENT DATE: 20221201
